FAERS Safety Report 11004781 (Version 1)
Quarter: 2015Q2

REPORT INFORMATION
  Report Type: Report from Study
  Country: NL (occurrence: NL)
  Receive Date: 20150409
  Receipt Date: 20150409
  Transmission Date: 20150821
  Serious: Yes (Hospitalization, Disabling)
  Sender: FDA-Public Use
  Company Number: PHHY2015NL040836

PATIENT
  Age: 65 Year
  Sex: Male

DRUGS (1)
  1. ZOMETA [Suspect]
     Active Substance: ZOLEDRONIC ACID
     Indication: PROSTATE CANCER METASTATIC
     Dosage: 4MG/100ML, ONCE EVERY 4 WEEKS
     Route: 042

REACTIONS (2)
  - Spinal cord injury thoracic [Not Recovered/Not Resolved]
  - Cerebral infarction [Unknown]

NARRATIVE: CASE EVENT DATE: 20150310
